FAERS Safety Report 5768274-2 (Version None)
Quarter: 2008Q2

REPORT INFORMATION
  Report Type: 
  Country: None (occurrence: None)
  Receive Date: 20080609
  Receipt Date: 20080526
  Transmission Date: 20081010
  Serious: Yes (Life-Threatening, Other)
  Sender: FDA-Public Use
  Company Number: S08-FRA-00814-01

PATIENT
  Age: 82 Year
  Sex: Male
  Weight: 75 kg

DRUGS (5)
  1. MEMANTINE HCL [Suspect]
     Indication: DEMENTIA ALZHEIMER'S TYPE
     Dosage: 10 MG BID PO
     Route: 048
     Dates: start: 20071001, end: 20080401
  2. EXELON [Concomitant]
  3. JOSIR (TAMSULOSIN HYDROCHLORIDE) [Concomitant]
  4. TEMERIT (NEBIVOLOL) [Concomitant]
  5. ALLOPURINOL [Concomitant]

REACTIONS (4)
  - AXILLARY VEIN THROMBOSIS [None]
  - JUGULAR VEIN THROMBOSIS [None]
  - LYMPHADENOPATHY [None]
  - SUBCLAVIAN VEIN THROMBOSIS [None]
